FAERS Safety Report 17643951 (Version 1)
Quarter: 2020Q2

REPORT INFORMATION
  Report Type: Spontaneous
  Country: US (occurrence: US)
  Receive Date: 20200407
  Receipt Date: 20200407
  Transmission Date: 20200713
  Serious: No
  Sender: FDA-Public Use
  Company Number: None

PATIENT
  Age: 54 Year
  Sex: Male

DRUGS (1)
  1. TACROLIMUS CAP 1MG [Suspect]
     Active Substance: TACROLIMUS
     Route: 048
     Dates: start: 201902

REACTIONS (4)
  - Fatigue [None]
  - Dyspnoea [None]
  - Product dose omission [None]
  - Product prescribing issue [None]

NARRATIVE: CASE EVENT DATE: 20200407
